FAERS Safety Report 19173176 (Version 1)
Quarter: 2021Q2

REPORT INFORMATION
  Report Type: Spontaneous
  Country: US (occurrence: US)
  Receive Date: 20210422
  Receipt Date: 20210422
  Transmission Date: 20210717
  Serious: Yes (Hospitalization)
  Sender: FDA-Public Use
  Company Number: None

PATIENT
  Age: 70 Year
  Sex: Male

DRUGS (1)
  1. VOTRIENT [Suspect]
     Active Substance: PAZOPANIB HYDROCHLORIDE
     Indication: LOCALISED OEDEMA
     Route: 048
     Dates: start: 20190824

REACTIONS (3)
  - Cardiac pacemaker insertion [None]
  - Hospitalisation [None]
  - Cardioversion [None]

NARRATIVE: CASE EVENT DATE: 20210421
